FAERS Safety Report 5241924-5 (Version None)
Quarter: 2007Q1

REPORT INFORMATION
  Report Type: 
  Country: None (occurrence: None)
  Receive Date: 20070212
  Receipt Date: 20070212
  Transmission Date: 20070707
  Serious: Yes (Hospitalization)
  Sender: FDA-Public Use
  Company Number: None

PATIENT
  Age: 57 Year
  Sex: Male

DRUGS (2)
  1. TERAZOSIN HCL [Suspect]
     Indication: HYPERTENSION
     Dosage: 5MG   PO
     Route: 048
     Dates: start: 20061030
  2. TERAZOSIN HCL [Suspect]
     Indication: PROSTATIC DISORDER
     Dosage: 5MG   PO
     Route: 048
     Dates: start: 20061030

REACTIONS (2)
  - PAIN [None]
  - PRIAPISM [None]
